FAERS Safety Report 9866160 (Version 1)
Quarter: 2014Q1

REPORT INFORMATION
  Report Type: Spontaneous
  Country: US (occurrence: US)
  Receive Date: 20140203
  Receipt Date: 20140203
  Transmission Date: 20141002
  Serious: No
  Sender: FDA-Public Use
  Company Number: US-ALLERGAN-1316375US

PATIENT
  Age: 75 Year
  Sex: Male

DRUGS (4)
  1. RESTASIS [Suspect]
     Indication: DRY EYE
     Dosage: 2 GTT, BID
     Route: 047
     Dates: start: 20130424
  2. BRIMONIDINE [Concomitant]
     Indication: GLAUCOMA
  3. DORZOLAMIDE [Concomitant]
     Indication: GLAUCOMA
  4. LATANOPROST [Concomitant]
     Indication: GLAUCOMA

REACTIONS (4)
  - Foreign body sensation in eyes [Recovered/Resolved]
  - Vision blurred [Not Recovered/Not Resolved]
  - Vision blurred [Not Recovered/Not Resolved]
  - Lacrimation increased [Not Recovered/Not Resolved]
